FAERS Safety Report 15620841 (Version 2)
Quarter: 2020Q3

REPORT INFORMATION
  Report Type: Spontaneous
  Country: US (occurrence: US)
  Receive Date: 20181115
  Receipt Date: 20200823
  Transmission Date: 20201102
  Serious: No
  Sender: FDA-Public Use
  Company Number: US-SA-2018SA312929

PATIENT

DRUGS (1)
  1. DUPIXENT [Suspect]
     Active Substance: DUPILUMAB
     Indication: DERMATITIS
     Dosage: 300 MG, QOW
     Route: 058
     Dates: start: 20181005

REACTIONS (7)
  - Dry skin [Unknown]
  - Visual impairment [Unknown]
  - Condition aggravated [Unknown]
  - Eyelid margin crusting [Unknown]
  - Eye pruritus [Unknown]
  - Dry eye [Unknown]
  - Skin exfoliation [Unknown]
